FAERS Safety Report 9529271 (Version 1)
Quarter: 2013Q1

REPORT INFORMATION
  Report Type: Spontaneous
  Country: US (occurrence: None)
  Receive Date: 20130329
  Receipt Date: 20130329
  Transmission Date: 20140127
  Serious: Yes (Other)
  Sender: FDA-Public Use
  Company Number: 1000042684

PATIENT
  Age: 81 Year
  Sex: Female

DRUGS (4)
  1. LINZESS [Suspect]
     Indication: IRRITABLE BOWEL SYNDROME
     Dates: start: 20130211, end: 20130211
  2. LISINOPRIL [Concomitant]
  3. LORAZEPAM [Concomitant]
  4. TRAZODONE [Concomitant]

REACTIONS (1)
  - Diarrhoea [None]
